FAERS Safety Report 21544309 (Version 1)
Quarter: 2022Q4

REPORT INFORMATION
  Report Type: Spontaneous
  Country: US (occurrence: US)
  Receive Date: 20221102
  Receipt Date: 20221102
  Transmission Date: 20230113
  Serious: No
  Sender: FDA-Public Use
  Company Number: US-009507513-2211USA000208

PATIENT
  Age: 31 Year
  Sex: Female

DRUGS (2)
  1. KEYTRUDA [Suspect]
     Active Substance: PEMBROLIZUMAB
     Dosage: UNK
  2. LENVATINIB MESYLATE [Suspect]
     Active Substance: LENVATINIB MESYLATE
     Indication: Endometrial cancer
     Dosage: UNK, QD
     Route: 048
     Dates: start: 2020

REACTIONS (7)
  - Drug interaction [Unknown]
  - Food allergy [Recovering/Resolving]
  - Lactose intolerance [Recovering/Resolving]
  - Rash [Recovering/Resolving]
  - Myalgia [Recovering/Resolving]
  - Dehydration [Recovering/Resolving]
  - Hereditary non-polyposis colorectal cancer syndrome [Unknown]
